FAERS Safety Report 21908492 (Version 1)
Quarter: 2023Q1

REPORT INFORMATION
  Report Type: Report from Study
  Country: US (occurrence: US)
  Receive Date: 20230125
  Receipt Date: 20230125
  Transmission Date: 20230418
  Serious: Yes (Hospitalization)
  Sender: FDA-Public Use
  Company Number: US-BIOVITRUM-2022US08819

PATIENT
  Age: 28 Year
  Sex: Female

DRUGS (4)
  1. KINERET [Suspect]
     Active Substance: ANAKINRA
     Indication: Still^s disease
     Dates: start: 20210625
  2. KINERET [Suspect]
     Active Substance: ANAKINRA
     Dates: start: 20220622
  3. KINERET [Suspect]
     Active Substance: ANAKINRA
     Dates: start: 202206
  4. KINERET [Suspect]
     Active Substance: ANAKINRA
     Dates: start: 20220622

REACTIONS (8)
  - Inflammation [Unknown]
  - Pyrexia [Unknown]
  - Inflammatory marker increased [Unknown]
  - Liver disorder [Unknown]
  - Therapeutic response unexpected [Unknown]
  - Product dose omission issue [Unknown]
  - Needle issue [Unknown]
  - Off label use [Unknown]

NARRATIVE: CASE EVENT DATE: 20210625
